FAERS Safety Report 7593972-8 (Version None)
Quarter: 2011Q3

REPORT INFORMATION
  Report Type: 
  Country: None (occurrence: None)
  Receive Date: 20110706
  Receipt Date: 20110627
  Transmission Date: 20111222
  Serious: Yes (Other)
  Sender: FDA-Public Use
  Company Number: FR-ASTRAZENECA-2011SE38938

PATIENT
  Age: 2 Month
  Sex: Female
  Weight: 5.8 kg

DRUGS (1)
  1. EMLA [Suspect]
     Indication: LOCAL ANAESTHESIA
     Route: 061
     Dates: start: 20110524, end: 20110524

REACTIONS (1)
  - RASH MACULO-PAPULAR [None]
